FAERS Safety Report 7169848-7 (Version None)
Quarter: 2010Q4

REPORT INFORMATION
  Report Type: 
  Country: None (occurrence: None)
  Receive Date: 20101217
  Receipt Date: 20101207
  Transmission Date: 20110411
  Serious: Yes (Hospitalization, Other)
  Sender: FDA-Public Use
  Company Number: PHHY2010BR84257

PATIENT
  Sex: Female

DRUGS (8)
  1. EXELON [Suspect]
     Indication: MEMORY IMPAIRMENT
     Dosage: 9 MG/5CM2 PATCH
     Route: 062
     Dates: start: 20100301
  2. EXELON [Suspect]
     Dosage: 18 MG/10CM2
     Route: 062
     Dates: end: 20100601
  3. AMITRIPTYLINE [Concomitant]
     Indication: DEPRESSION
     Dosage: ONE TABLET ONCE A DAY
     Route: 048
  4. PAROXETINE [Concomitant]
     Indication: DEPRESSION
     Dosage: ONE TABLET ONCE A DAY
     Route: 048
  5. BROMAZEPAM [Concomitant]
     Dosage: 1 TABLET ONCE A DAY
     Route: 048
  6. PURAN T4 [Concomitant]
     Indication: THYROID DISORDER
     Dosage: 1 TABLET ONCE A DAY
     Route: 048
  7. OMEPRAZOLE [Concomitant]
     Indication: ABDOMINAL DISCOMFORT
     Dosage: 1 TABLET ONCE A DAY
     Route: 048
  8. LOSARTAN POTASSIUM AND HYDROCHLOROTHIAZIDE [Concomitant]
     Indication: BLOOD PRESSURE
     Dosage: 1 TABLET ONCE A DAY
     Route: 048

REACTIONS (4)
  - INFECTION [None]
  - NOSOCOMIAL INFECTION [None]
  - PNEUMONIA [None]
  - PULMONARY EMBOLISM [None]
